FAERS Safety Report 19278162 (Version 1)
Quarter: 2021Q2

REPORT INFORMATION
  Report Type: Spontaneous
  Country: US (occurrence: US)
  Receive Date: 20210519
  Receipt Date: 20210519
  Transmission Date: 20210717
  Serious: No
  Sender: FDA-Public Use
  Company Number: None

PATIENT
  Sex: Female
  Weight: 51.75 kg

DRUGS (1)
  1. CAPECITABINE. [Suspect]
     Active Substance: CAPECITABINE
     Indication: BREAST CANCER
     Dosage: ?          OTHER FREQUENCY:BID 14/21 DAYS;?
     Route: 048
     Dates: start: 20210413

REACTIONS (4)
  - Rash [None]
  - Diarrhoea [None]
  - Blister [None]
  - Rash erythematous [None]
